FAERS Safety Report 4535909-1 (Version None)
Quarter: 2004Q4

REPORT INFORMATION
  Report Type: 
  Country: None (occurrence: None)
  Receive Date: 20041223
  Receipt Date: 20041213
  Transmission Date: 20050328
  Serious: Yes (Other)
  Sender: FDA-Public Use
  Company Number: US-JNJFOC-20041101925

PATIENT
  Sex: Female
  Weight: 99.79 kg

DRUGS (10)
  1. REMICADE [Suspect]
     Route: 042
  2. REMICADE [Suspect]
     Route: 042
  3. REMICADE [Suspect]
     Indication: CROHN'S DISEASE
     Route: 042
  4. CLARITIN [Concomitant]
     Indication: PREMEDICATION
     Dosage: 2 TABLETS
  5. CLARITIN [Concomitant]
     Dosage: 1-2 TABLETS/DAY
  6. ASACOL [Concomitant]
     Indication: COLITIS
     Dosage: 9 TABLETS/DAY
  7. PEPCID [Concomitant]
  8. ANTI-HISTAMINE TAB [Concomitant]
  9. CIPRO [Concomitant]
  10. RETIN-A [Concomitant]

REACTIONS (12)
  - ARTHRALGIA [None]
  - CYST [None]
  - DIFFICULTY IN WALKING [None]
  - ERYTHEMA [None]
  - HEADACHE [None]
  - HEPATIC ENZYME INCREASED [None]
  - MUSCLE RIGIDITY [None]
  - MYALGIA [None]
  - PAIN IN EXTREMITY [None]
  - PYREXIA [None]
  - SKIN INFECTION [None]
  - URTICARIA [None]
